FAERS Safety Report 4277804-1 (Version None)
Quarter: 2004Q1

REPORT INFORMATION
  Report Type: 
  Country: None (occurrence: None)
  Receive Date: 20040122
  Receipt Date: 20040122
  Transmission Date: 20041129
  Serious: Yes (Disabling, Other)
  Sender: FDA-Public Use
  Company Number: None

PATIENT
  Sex: Female
  Weight: 67.1324 kg

DRUGS (2)
  1. TYLENOL SINUS - PSEUDOEPHIDRINE HCL 30MG [Suspect]
     Indication: SINUS DISORDER
     Dosage: REC DOSE OF 2 TABS ORAL X 1
     Route: 048
  2. TYLENOL SINUS - PSEUDOEPHIDRINE HCL 30MG [Suspect]

REACTIONS (6)
  - ABNORMAL BEHAVIOUR [None]
  - DIZZINESS [None]
  - DYSARTHRIA [None]
  - GAIT DISTURBANCE [None]
  - MEMORY IMPAIRMENT [None]
  - SOMNOLENCE [None]
